FAERS Safety Report 9059942 (Version 1)
Quarter: 2013Q1

REPORT INFORMATION
  Report Type: Spontaneous
  Country: US (occurrence: None)
  Receive Date: 20130118
  Receipt Date: 20130118
  Transmission Date: 20140127
  Serious: Yes (Hospitalization)
  Sender: FDA-Public Use
  Company Number: IMP_06135_2013

PATIENT
  Age: 29 Year
  Sex: Female

DRUGS (3)
  1. BUPROPION HYDROCHLORIDE [Suspect]
     Indication: PRODUCT USED FOR UNKNOWN INDICATION
     Dosage: (NOT THE PRESCRIBED AMOUNT] [1441 NG/ML ONCE] ORAL)
     Route: 048
  2. GABAPENTIN [Suspect]
     Indication: PERIODIC LIMB MOVEMENT DISORDER
     Dosage: (NOT THE PRESCRIBED AMOUNT] [1200 MG ONCE] ORAL), (DF)
     Route: 048
  3. AMPHETAMINE/DEXTROAMPHETAMINE [Concomitant]

REACTIONS (13)
  - Grand mal convulsion [None]
  - Mental status changes [None]
  - Dizziness [None]
  - Fall [None]
  - Hypotension [None]
  - Coma scale abnormal [None]
  - Heart rate increased [None]
  - Metabolic acidosis [None]
  - Sinus tachycardia [None]
  - Electrocardiogram QT prolonged [None]
  - Sepsis [None]
  - Unresponsive to stimuli [None]
  - Overdose [None]
